FAERS Safety Report 22537100 (Version 2)
Quarter: 2023Q2

REPORT INFORMATION
  Report Type: Spontaneous
  Country: US (occurrence: US)
  Receive Date: 20230608
  Receipt Date: 20230619
  Transmission Date: 20230721
  Serious: Yes (Hospitalization)
  Sender: FDA-Public Use
  Company Number: US-TEVA-2023-US-2893328

PATIENT
  Age: 58 Year
  Sex: Female

DRUGS (2)
  1. PREDNISONE [Suspect]
     Active Substance: PREDNISONE
     Indication: Venoocclusive liver disease
     Dosage: 100 MILLIGRAM DAILY;
     Route: 065
  2. URSODIOL [Suspect]
     Active Substance: URSODIOL
     Indication: Venoocclusive liver disease
     Dosage: 600 MILLIGRAM DAILY;
     Route: 065

REACTIONS (2)
  - Drug ineffective [Unknown]
  - Portal hypertension [Not Recovered/Not Resolved]
